FAERS Safety Report 16543246 (Version 5)
Quarter: 2020Q3

REPORT INFORMATION
  Report Type: Report from Study
  Country: CA (occurrence: CA)
  Receive Date: 20190709
  Receipt Date: 20200909
  Transmission Date: 20201102
  Serious: Yes (Hospitalization)
  Sender: FDA-Public Use
  Company Number: CA-GLAXOSMITHKLINE-CA2019GSK105167

PATIENT
  Sex: Male

DRUGS (3)
  1. MEPOLIZUMAB [Suspect]
     Active Substance: MEPOLIZUMAB
     Indication: ASTHMA
     Dosage: 100 MG, MONTHLY
     Route: 042
     Dates: start: 20180117
  2. MEPOLIZUMAB [Suspect]
     Active Substance: MEPOLIZUMAB
     Dosage: 100 MG, MONTHLY
     Route: 042
  3. MEPOLIZUMAB [Suspect]
     Active Substance: MEPOLIZUMAB
     Dosage: 100 MG, Z( MONTHLY)
     Route: 042

REACTIONS (9)
  - Oedema peripheral [Unknown]
  - Limb discomfort [Unknown]
  - Gout [Unknown]
  - Wound [Not Recovered/Not Resolved]
  - Spinal operation [Unknown]
  - Peripheral swelling [Unknown]
  - Localised infection [Recovered/Resolved]
  - Pain in extremity [Unknown]
  - Erythema [Unknown]
